FAERS Safety Report 7612262-8 (Version None)
Quarter: 2011Q3

REPORT INFORMATION
  Report Type: 
  Country: None (occurrence: None)
  Receive Date: 20110715
  Receipt Date: 20110630
  Transmission Date: 20111222
  Serious: Yes (Other)
  Sender: FDA-Public Use
  Company Number: PHHY2011US58960

PATIENT
  Sex: Female

DRUGS (8)
  1. DIOVAN [Suspect]
     Dosage: 80 MG, QD
     Route: 048
  2. GLIMEPIRIDE [Concomitant]
  3. IBUPROFEN [Concomitant]
  4. VERAPAMIL [Concomitant]
  5. GEMFIBROZIL [Concomitant]
  6. HYDROCODONE [Concomitant]
  7. DOC-Q-LACE [Concomitant]
  8. SUMATRIPTAN SUCCINATE [Concomitant]

REACTIONS (9)
  - MIGRAINE [None]
  - IRON DEFICIENCY [None]
  - ANAEMIA [None]
  - TYPE 2 DIABETES MELLITUS [None]
  - HERNIA [None]
  - HYPERCHOLESTEROLAEMIA [None]
  - HYPERTENSION [None]
  - INTESTINAL OBSTRUCTION [None]
  - CHORDOMA [None]
